FAERS Safety Report 11247195 (Version 10)
Quarter: 2017Q4

REPORT INFORMATION
  Report Type: Report from Study
  Country: BR (occurrence: BR)
  Receive Date: 20150708
  Receipt Date: 20171010
  Transmission Date: 20180320
  Serious: Yes (Hospitalization, Other)
  Sender: FDA-Public Use
  Company Number: PHHY2014BR145601

PATIENT
  Age: 57 Year
  Sex: Female
  Weight: 66 kg

DRUGS (22)
  1. ACLASTA [Suspect]
     Active Substance: ZOLEDRONIC ACID
     Dosage: 5 MG, Q12MO
     Route: 042
     Dates: start: 2014
  2. LIBIAN 28 [Concomitant]
     Indication: ENDOCRINE DISORDER
     Dosage: 1 DF, QD
     Route: 065
     Dates: start: 2002
  3. GABANEURIN [Concomitant]
     Active Substance: GABAPENTIN
     Dosage: 300 MG, QD (3 YEARS AGO)
     Route: 048
  4. AMYTRIL [Concomitant]
     Active Substance: AMITRIPTYLINE HYDROCHLORIDE
     Indication: PRODUCT USED FOR UNKNOWN INDICATION
     Dosage: 2 DF, QD
     Route: 065
  5. FOLIN [Concomitant]
     Active Substance: FOLIC ACID
     Indication: PSORIASIS
     Dosage: 2 DF, (ONLY ON TUESDAY 2 TABLETS IN THE MORNING)
     Route: 048
  6. ACLASTA [Suspect]
     Active Substance: ZOLEDRONIC ACID
     Dosage: 5 MG, Q12MO
     Route: 042
     Dates: start: 2008
  7. OMEPRAZOLE. [Suspect]
     Active Substance: OMEPRAZOLE
     Indication: PRODUCT USED FOR UNKNOWN INDICATION
     Dosage: 1 DF, QD
     Route: 065
  8. VELIJA [Concomitant]
     Active Substance: DULOXETINE HYDROCHLORIDE
     Dosage: 1 DF, QD (4 YEARS)
     Route: 048
  9. GABANEURIN [Concomitant]
     Active Substance: GABAPENTIN
     Indication: BONE DISORDER
     Dosage: 2 DF, QD
     Route: 065
  10. DOLAMIN FLEX [Concomitant]
     Active Substance: CLONIXIN\CYCLOBENZAPRINE
     Indication: PAIN
     Dosage: 1 DF, QD (2 YEARS)
     Route: 048
  11. DEPURA [Suspect]
     Active Substance: CHOLECALCIFEROL
     Indication: HYPOVITAMINOSIS
     Dosage: 5 DRP, QD
     Route: 065
     Dates: start: 2012
  12. DEPURA [Suspect]
     Active Substance: CHOLECALCIFEROL
     Indication: IMMUNE SYSTEM DISORDER
  13. RIVOTRIL [Concomitant]
     Active Substance: CLONAZEPAM
     Indication: SLEEP DISORDER
     Dosage: 1 DF, QD (10 YEARS)
     Route: 048
     Dates: start: 2008
  14. AMYTRIL [Concomitant]
     Active Substance: AMITRIPTYLINE HYDROCHLORIDE
     Indication: BONE DISORDER
     Dosage: 1 DF, QD (3 YEARS)
     Route: 048
  15. ACLASTA [Suspect]
     Active Substance: ZOLEDRONIC ACID
     Dosage: 5 MG, Q12MO
     Route: 042
     Dates: start: 20151114
  16. TRAMADOL. [Suspect]
     Active Substance: TRAMADOL
     Indication: PAIN
     Dosage: 2 DF, QD
     Route: 065
  17. VELIJA [Concomitant]
     Active Substance: DULOXETINE HYDROCHLORIDE
     Indication: DEPRESSION
     Dosage: 60 MG, UNK
     Route: 065
  18. ACLASTA [Suspect]
     Active Substance: ZOLEDRONIC ACID
     Indication: OSTEITIS DEFORMANS
     Dosage: 5 MG, Q12MO
     Route: 042
     Dates: start: 2006
  19. BONEPREV [Concomitant]
     Indication: PSORIASIS
     Dosage: 5 DF (ONLY ON MONDAY, 3 TABLETS IN THE MORNING AND 2 TABLETS AT NIGHT), (1 MONTH)
     Route: 048
  20. ULTRACET [Concomitant]
     Active Substance: ACETAMINOPHEN\TRAMADOL HYDROCHLORIDE
     Indication: PAIN
     Dosage: 1 DF, PRN (1 YEAR)
     Route: 048
  21. LIBIAM [Concomitant]
     Active Substance: TIBOLONE
     Indication: HORMONE LEVEL ABNORMAL
     Dosage: 1 DF, QD
     Route: 048
     Dates: start: 1997
  22. VYTORIN [Concomitant]
     Active Substance: EZETIMIBE\SIMVASTATIN
     Indication: BLOOD CHOLESTEROL ABNORMAL
     Dosage: 1 DF, QD (5 YEARS)
     Route: 048
     Dates: start: 2009

REACTIONS (31)
  - Seizure [Recovering/Resolving]
  - Femoral neck fracture [Recovering/Resolving]
  - Hip fracture [Recovering/Resolving]
  - Cyst [Recovering/Resolving]
  - Osteoarthritis [Recovering/Resolving]
  - Chills [Recovering/Resolving]
  - Pain in extremity [Recovering/Resolving]
  - Pain [Recovering/Resolving]
  - Retching [Recovering/Resolving]
  - Malaise [Unknown]
  - General physical health deterioration [Unknown]
  - Exostosis [Recovering/Resolving]
  - Back pain [Not Recovered/Not Resolved]
  - Pyrexia [Recovering/Resolving]
  - Decreased immune responsiveness [Unknown]
  - Inflammation [Unknown]
  - Arthritis [Recovering/Resolving]
  - Depression [Recovering/Resolving]
  - Injury [Unknown]
  - Weight decreased [Unknown]
  - Gastritis [Recovering/Resolving]
  - Bursitis [Unknown]
  - Weight increased [Recovering/Resolving]
  - Spinal disorder [Recovering/Resolving]
  - Intervertebral disc protrusion [Recovering/Resolving]
  - Arthralgia [Not Recovered/Not Resolved]
  - Cough [Recovering/Resolving]
  - Peripheral swelling [Unknown]
  - Fall [Unknown]
  - Nausea [Recovering/Resolving]
  - Musculoskeletal pain [Unknown]

NARRATIVE: CASE EVENT DATE: 2013
